FAERS Safety Report 20883752 (Version 1)
Quarter: 2022Q2

REPORT INFORMATION
  Report Type: Spontaneous
  Country: US (occurrence: None)
  Receive Date: 20220526
  Receipt Date: 20220526
  Transmission Date: 20220721
  Serious: Yes (unspecified)
  Sender: FDA-Public Use
  Company Number: None

PATIENT
  Age: 58 Year
  Sex: Female
  Weight: 61.2 kg

DRUGS (4)
  1. TRAZIMERA [Suspect]
     Active Substance: TRASTUZUMAB-QYYP
     Indication: Breast cancer
     Dosage: OTHER FREQUENCY : EVERY THREE WEEKS;?OTHER ROUTE : INTO A INFUSION PORT;?
     Route: 050
  2. Synthroid 88mcg QD [Concomitant]
  3. Cyclosporine eye drops [Concomitant]
  4. Trazimera 367mg every 3 weeks [Concomitant]

REACTIONS (2)
  - Lacrimation increased [None]
  - Swollen tear duct [None]

NARRATIVE: CASE EVENT DATE: 20220324
